FAERS Safety Report 14478761 (Version 3)
Quarter: 2018Q1

REPORT INFORMATION
  Report Type: Spontaneous
  Country: US (occurrence: US)
  Receive Date: 20180202
  Receipt Date: 20180221
  Transmission Date: 20180509
  Serious: No
  Sender: FDA-Public Use
  Company Number: US-HORIZON-KRY-0026-2018

PATIENT
  Age: 75 Year
  Sex: Female

DRUGS (12)
  1. KRYSTEXXA [Suspect]
     Active Substance: PEGLOTICASE
     Indication: GOUT
     Dosage: 8 MG EVERY 2 WEEKS
  2. CLONIDINE. [Concomitant]
     Active Substance: CLONIDINE
  3. VITAMIN K [Concomitant]
     Active Substance: PHYTONADIONE
  4. BYSTOLIC [Concomitant]
     Active Substance: NEBIVOLOL HYDROCHLORIDE
  5. VITAMIN B12 [Concomitant]
     Active Substance: CYANOCOBALAMIN
  6. VITAMIN D2 [Concomitant]
     Active Substance: ERGOCALCIFEROL
     Dosage: 5000 IU
  7. HYDRALAZINE [Concomitant]
     Active Substance: HYDRALAZINE HYDROCHLORIDE
  8. FOLIC ACID. [Concomitant]
     Active Substance: FOLIC ACID
  9. RANITIDINE. [Concomitant]
     Active Substance: RANITIDINE
     Dosage: 300 MG
  10. PROCRIT [Concomitant]
     Active Substance: ERYTHROPOIETIN
  11. VELTASSA [Concomitant]
     Active Substance: PATIROMER
  12. CALCITRIOL. [Concomitant]
     Active Substance: CALCITRIOL

REACTIONS (2)
  - Dysphagia [Unknown]
  - Scar [Unknown]

NARRATIVE: CASE EVENT DATE: 201712
